FAERS Safety Report 23596789 (Version 2)
Quarter: 2024Q4

REPORT INFORMATION
  Report Type: Spontaneous
  Country: CA (occurrence: CA)
  Receive Date: 20240305
  Receipt Date: 20241218
  Transmission Date: 20250114
  Serious: Yes (Hospitalization, Other)
  Sender: PFIZER
  Company Number: CA-PFIZER INC-202400055035

PATIENT
  Age: 36 Year
  Sex: Male
  Weight: 92 kg

DRUGS (19)
  1. CISPLATIN [Suspect]
     Active Substance: CISPLATIN
     Indication: Adenocarcinoma metastatic
     Dosage: 43 MG
     Route: 042
     Dates: start: 20230301, end: 20230414
  2. BACTERIOSTATIC SODIUM CHLORIDE [Suspect]
     Active Substance: SODIUM CHLORIDE
     Indication: Adenocarcinoma metastatic
     Dosage: 40 UNK
     Route: 065
     Dates: start: 20230301, end: 20230410
  3. VEPESID [Suspect]
     Active Substance: ETOPOSIDE
     Indication: Adenocarcinoma metastatic
     Dosage: 214 MG
  4. ALLOPURINOL [Concomitant]
     Active Substance: ALLOPURINOL
     Dosage: 300 MG, DAILY
     Route: 048
  5. CLONAZEPAM [Concomitant]
     Active Substance: CLONAZEPAM
     Dosage: 0.25 MG, 2X/DAY
     Route: 048
  6. DEXAMETHASONE [Concomitant]
     Active Substance: DEXAMETHASONE
     Dosage: 12 MG
     Route: 048
  7. DEXAMETHASONE [Concomitant]
     Active Substance: DEXAMETHASONE
     Dosage: 4 MG, 2X/DAY
     Route: 048
  8. HYDROMORPHONE HYDROCHLORIDE [Concomitant]
     Active Substance: HYDROMORPHONE HYDROCHLORIDE
     Dosage: 3 MG, 2X/DAY
     Route: 048
  9. LORAZEPAM [Concomitant]
     Active Substance: LORAZEPAM
     Indication: Anxiety
     Dosage: 1 MG, AS NEEDED
     Route: 060
  10. METOCLOPRAMIDE [Concomitant]
     Active Substance: METOCLOPRAMIDE
     Indication: Nausea
     Dosage: 10 MG EVERY 6 HOURS
     Route: 048
  11. METOCLOPRAMIDE [Concomitant]
     Active Substance: METOCLOPRAMIDE
     Indication: Vomiting
  12. ONDANSETRON [Concomitant]
     Active Substance: ONDANSETRON
     Dosage: 8 MG (PRE-CHEMOTHERAPY)
     Route: 048
  13. PANTOPRAZOLE [Concomitant]
     Active Substance: PANTOPRAZOLE
     Dosage: 40 MG; BTD
     Route: 048
  14. RIVAROXABAN [Concomitant]
     Active Substance: RIVAROXABAN
     Dosage: 15 MG, 2X/DAY
     Route: 048
  15. SENNATABS [Concomitant]
     Dosage: 17 MG, DAILY (BEDTIME)
     Route: 048
  16. SODIUM PHOSPHATE [Concomitant]
     Active Substance: SODIUM PHOSPHATE
     Dosage: 500 MG, 3X/DAY
     Route: 048
  17. TRAZODONE [Concomitant]
     Active Substance: TRAZODONE HYDROCHLORIDE
     Indication: Sleep disorder
     Dosage: 25 MG TO 50 MG (AT BEDTIME PRN)
     Route: 048
  18. VENLAFAXINE HYDROCHLORIDE [Concomitant]
     Active Substance: VENLAFAXINE HYDROCHLORIDE
     Dosage: 112.5 MG, DAILY
     Route: 048
  19. ZOPICLONE [Concomitant]
     Active Substance: ZOPICLONE
     Dosage: 15 MG, DAILY
     Route: 048

REACTIONS (3)
  - Generalised oedema [Recovered/Resolved]
  - Hepatic failure [Recovered/Resolved]
  - Oral candidiasis [Recovered/Resolved]

NARRATIVE: CASE EVENT DATE: 20230412
